FAERS Safety Report 4329578-3 (Version None)
Quarter: 2004Q2

REPORT INFORMATION
  Report Type: 
  Country: None (occurrence: None)
  Receive Date: 20040401
  Receipt Date: 20031215
  Transmission Date: 20050107
  Serious: Yes (Other)
  Sender: FDA-Public Use
  Company Number: BR-ROCHE-354185

PATIENT
  Age: 58 Year
  Sex: Female
  Weight: 107 kg

DRUGS (19)
  1. RIVOTRIL [Suspect]
     Indication: DEPRESSION
     Route: 048
     Dates: start: 19990615
  2. RIVOTRIL [Suspect]
     Route: 048
     Dates: start: 20000615
  3. RIVOTRIL [Suspect]
     Route: 048
     Dates: start: 20010115
  4. GARDENAL [Concomitant]
     Route: 048
  5. PAMELOR [Concomitant]
     Indication: DEPRESSION
     Route: 048
  6. HYPERICUM [Concomitant]
     Route: 048
  7. DINAFLEX [Concomitant]
     Route: 048
  8. ENALAPRIL MALEATE [Concomitant]
     Indication: HYPERTENSION
     Route: 048
  9. NARCARICIN [Concomitant]
     Indication: HYPERURICAEMIA
     Route: 048
  10. CALCIUM [Concomitant]
     Route: 048
  11. GINGKO COMPLEX [Concomitant]
     Route: 048
  12. XALATAN [Concomitant]
     Indication: GLAUCOMA
     Route: 061
  13. LIPITOR [Concomitant]
     Route: 048
  14. CYNARA [Concomitant]
     Route: 048
  15. NEOSALDINA [Concomitant]
     Route: 048
  16. LASIX [Concomitant]
     Indication: HYPERTENSION
     Route: 048
  17. PHYTOTHERAPY [Concomitant]
  18. CALCIUM CARBONATE [Concomitant]
  19. FLANAX [Concomitant]

REACTIONS (8)
  - AMNESIA [None]
  - EMOTIONAL DISORDER [None]
  - FEELING ABNORMAL [None]
  - HEPATITIS [None]
  - OEDEMA [None]
  - SUICIDAL IDEATION [None]
  - URINARY RETENTION [None]
  - WEIGHT INCREASED [None]
